FAERS Safety Report 11447534 (Version 1)
Quarter: 2015Q3

REPORT INFORMATION
  Report Type: Spontaneous
  Country: US (occurrence: US)
  Receive Date: 20150831
  Receipt Date: 20150831
  Transmission Date: 20151125
  Serious: No
  Sender: FDA-Public Use
  Company Number: US-ELI_LILLY_AND_COMPANY-US200903003510

PATIENT
  Age: 67 Year
  Sex: Female

DRUGS (3)
  1. CYMBALTA [Suspect]
     Active Substance: DULOXETINE HYDROCHLORIDE
     Indication: DEPRESSION
     Dosage: 90 MG, UNK
     Dates: start: 200902
  2. CYMBALTA [Suspect]
     Active Substance: DULOXETINE HYDROCHLORIDE
     Dosage: 60 MG, UNK
  3. ADDERALL XR [Concomitant]
     Active Substance: AMPHETAMINE ASPARTATE\AMPHETAMINE SULFATE\DEXTROAMPHETAMINE SACCHARATE\DEXTROAMPHETAMINE SULFATE
     Indication: DEPRESSION

REACTIONS (4)
  - Tremor [Unknown]
  - Nausea [Unknown]
  - Hyperhidrosis [Unknown]
  - Weight decreased [Unknown]

NARRATIVE: CASE EVENT DATE: 200902
